FAERS Safety Report 4380204-7 (Version None)
Quarter: 2004Q2

REPORT INFORMATION
  Report Type: 
  Country: None (occurrence: None)
  Receive Date: 20040601
  Receipt Date: 20040220
  Transmission Date: 20050107
  Serious: No
  Sender: FDA-Public Use
  Company Number: WAES0312USA02238

PATIENT
  Age: 82 Year
  Sex: Female
  Weight: 62.1428 kg

DRUGS (11)
  1. ZETIA [Suspect]
     Dosage: 10 MG/DAILY/PO
     Route: 048
     Dates: start: 20021120, end: 20030601
  2. ZETIA [Suspect]
     Dosage: 10 MG/DAILY/PO
     Route: 048
     Dates: start: 20030625, end: 20031217
  3. CALAN [Concomitant]
  4. DIAZIDE [Concomitant]
  5. GLUCOTROL XL [Concomitant]
  6. IMDUR [Concomitant]
  7. XALATAN [Concomitant]
  8. ZESTRIL [Concomitant]
  9. ASPIRIN [Concomitant]
  10. POLICOSANOL [Concomitant]
  11. MULTIVITAMIN [Concomitant]

REACTIONS (2)
  - BLOOD CREATININE INCREASED [None]
  - RENAL FAILURE [None]
